FAERS Safety Report 8558280-7 (Version None)
Quarter: 2012Q3

REPORT INFORMATION
  Report Type: 
  Country: None (occurrence: None)
  Receive Date: 20120801
  Receipt Date: 20120725
  Transmission Date: 20120928
  Serious: Yes (Other)
  Sender: FDA-Public Use
  Company Number: GB-JNJFOC-20120715280

PATIENT
  Age: 77 Year
  Sex: Male
  Weight: 91 kg

DRUGS (10)
  1. BENDROFLUMETHIAZIDE [Concomitant]
     Route: 048
     Dates: start: 19991129
  2. BISOPROLOL FUMARATE [Concomitant]
     Route: 048
     Dates: start: 20111025
  3. RAMIPRIL [Concomitant]
  4. AMLODIPINE [Concomitant]
     Route: 048
     Dates: start: 19991129
  5. XARELTO [Suspect]
     Indication: CEREBROVASCULAR ACCIDENT PROPHYLAXIS
     Route: 048
     Dates: start: 20120607, end: 20120711
  6. XARELTO [Suspect]
     Indication: ATRIAL FIBRILLATION
     Route: 048
     Dates: start: 20120607, end: 20120711
  7. ROSUVASTATIN [Concomitant]
  8. RANITIDINE [Concomitant]
     Dates: start: 20111125
  9. DOXAZOSIN MESYLATE [Concomitant]
     Route: 048
     Dates: start: 19990810
  10. QUININE SULFATE [Concomitant]

REACTIONS (3)
  - ANAEMIA [None]
  - HAEMOGLOBIN DECREASED [None]
  - PLATELET COUNT DECREASED [None]
